FAERS Safety Report 6719770-2 (Version None)
Quarter: 2010Q2

REPORT INFORMATION
  Report Type: 
  Country: None (occurrence: None)
  Receive Date: 20100511
  Receipt Date: 20100503
  Transmission Date: 20101027
  Serious: Yes (Other)
  Sender: FDA-Public Use
  Company Number: A0858921A

PATIENT
  Age: 54 Year
  Sex: Female

DRUGS (4)
  1. WELLBUTRIN [Suspect]
     Indication: BIPOLAR DISORDER
     Route: 048
  2. LAMICTAL CD [Suspect]
     Indication: BIPOLAR DISORDER
     Dosage: 25MG UNKNOWN
     Route: 048
  3. ZOLOFT [Suspect]
     Indication: BIPOLAR DISORDER
     Dosage: 100MGD PER DAY
     Route: 048
     Dates: end: 20100101
  4. ADVAIR DISKUS 100/50 [Concomitant]

REACTIONS (6)
  - ADVERSE EVENT [None]
  - DRUG ADMINISTRATION ERROR [None]
  - FEELING ABNORMAL [None]
  - FORMICATION [None]
  - HYPERTONIC BLADDER [None]
  - TENSION [None]
